FAERS Safety Report 9326086 (Version 2)
Quarter: 2013Q3

REPORT INFORMATION
  Report Type: Spontaneous
  Country: DE (occurrence: DE)
  Receive Date: 20130604
  Receipt Date: 20130808
  Transmission Date: 20140515
  Serious: Yes (Hospitalization)
  Sender: FDA-Public Use
  Company Number: DE-CELGENEUS-062-21880-13053737

PATIENT
  Age: 61 Year
  Sex: Male

DRUGS (8)
  1. REVLIMID [Suspect]
     Indication: PLASMA CELL MYELOMA
     Route: 048
     Dates: start: 20070727
  2. REVLIMID [Suspect]
     Route: 048
     Dates: start: 20071201, end: 20071231
  3. REVLIMID [Suspect]
     Route: 048
     Dates: start: 20080101, end: 20080429
  4. REVLIMID [Suspect]
     Route: 048
     Dates: start: 200806, end: 200812
  5. FORTECORTIN [Concomitant]
     Indication: PLASMA CELL MYELOMA
     Dosage: 10 MILLIGRAM
     Route: 065
  6. COTRIMOXAZOLE [Concomitant]
     Indication: INFECTION
     Route: 065
  7. ASPIRINE [Concomitant]
     Indication: PROPHYLAXIS
     Dosage: 100 MILLIGRAM
     Route: 065
  8. PANTOZOL [Concomitant]
     Indication: PROPHYLAXIS
     Dosage: 20 MILLIGRAM
     Route: 065

REACTIONS (2)
  - Bladder cancer [Unknown]
  - Plasma cell myeloma [Unknown]
